FAERS Safety Report 23130536 (Version 1)
Quarter: 2023Q4

REPORT INFORMATION
  Report Type: Spontaneous
  Country: CZ (occurrence: CZ)
  Receive Date: 20231031
  Receipt Date: 20231031
  Transmission Date: 20240109
  Serious: Yes (Other)
  Sender: FDA-Public Use
  Company Number: CZ-SUN PHARMACEUTICAL INDUSTRIES LTD-2023RR-415721

PATIENT
  Age: 61 Year
  Sex: Male
  Weight: 88 kg

DRUGS (7)
  1. PEMETREXED [Suspect]
     Active Substance: PEMETREXED
     Indication: Non-small cell lung cancer
     Dosage: 500 MILLIGRAM/SQ. METER, EVERY 3 WEEKS
     Route: 065
  2. CISPLATIN [Suspect]
     Active Substance: CISPLATIN
     Indication: Non-small cell lung cancer
     Dosage: 75 MILLIGRAM/SQ. METER
     Route: 065
  3. ERLOTINIB [Suspect]
     Active Substance: ERLOTINIB
     Indication: Non-small cell lung cancer
     Dosage: 250 MILLIGRAM, DAILY
     Route: 065
     Dates: start: 202007
  4. DOCETAXEL [Suspect]
     Active Substance: DOCETAXEL
     Indication: Non-small cell lung cancer
     Dosage: 75 MILLIGRAM, UNK
     Route: 065
  5. DOXORUBICIN [Suspect]
     Active Substance: DOXORUBICIN
     Indication: Non-small cell lung cancer
     Dosage: 45 MILLIGRAM/SQ. METER, ON DAY 1
     Route: 065
  6. VINCRISTINE [Suspect]
     Active Substance: VINCRISTINE
     Indication: Non-small cell lung cancer
     Dosage: 1.4 MILLIGRAM/SQ. METER, ON DAY 1 EVERY 3 WEEKS
     Route: 065
  7. CYCLOPHOSPHAMIDE [Suspect]
     Active Substance: CYCLOPHOSPHAMIDE
     Indication: Non-small cell lung cancer
     Dosage: 1000 MILLIGRAM/SQ. METER, DAY 1
     Route: 065

REACTIONS (4)
  - Disease recurrence [Unknown]
  - Disease progression [Unknown]
  - Condition aggravated [Unknown]
  - Drug ineffective [Unknown]
